FAERS Safety Report 5339293-5 (Version None)
Quarter: 2007Q2

REPORT INFORMATION
  Report Type: 
  Country: None (occurrence: None)
  Receive Date: 20070530
  Receipt Date: 20070524
  Transmission Date: 20071010
  Serious: Yes (Hospitalization)
  Sender: FDA-Public Use
  Company Number: FR-MERCK-0201FRA00008

PATIENT
  Age: 3 Day
  Sex: Female

DRUGS (9)
  1. CRIXIVAN [Suspect]
     Indication: HIV INFECTION
     Route: 064
     Dates: start: 19970529, end: 19970701
  2. STAVUDINE [Suspect]
     Indication: HIV INFECTION
     Route: 064
     Dates: start: 19970529, end: 19970701
  3. DIDANOSINE [Suspect]
     Indication: HIV INFECTION
     Route: 064
     Dates: start: 19970529, end: 19970701
  4. ZIDOVUDINE [Suspect]
     Indication: HIV INFECTION
     Route: 064
     Dates: start: 19970701
  5. ZIDOVUDINE [Suspect]
     Route: 064
     Dates: start: 19980119, end: 19980119
  6. LAMIVUDINE [Suspect]
     Indication: HIV INFECTION
     Route: 064
     Dates: start: 19971112
  7. SAQUINAVIR MESYLATE [Suspect]
     Indication: HIV INFECTION
     Route: 064
     Dates: start: 19971112
  8. ZIDOVUDINE [Suspect]
     Indication: PROPHYLAXIS AGAINST HIV INFECTION
     Route: 064
     Dates: start: 19980119, end: 19980301
  9. LAMIVUDINE [Suspect]
     Indication: PROPHYLAXIS AGAINST HIV INFECTION
     Route: 064
     Dates: start: 19980119, end: 19980301

REACTIONS (4)
  - ANAEMIA MACROCYTIC [None]
  - FOETAL GROWTH RETARDATION [None]
  - NEUTROPENIA [None]
  - NUCLEAR MAGNETIC RESONANCE IMAGING ABNORMAL [None]
